FAERS Safety Report 20750924 (Version 3)
Quarter: 2022Q3

REPORT INFORMATION
  Report Type: Spontaneous
  Country: US (occurrence: US)
  Receive Date: 20220426
  Receipt Date: 20220822
  Transmission Date: 20221026
  Serious: No
  Sender: FDA-Public Use
  Company Number: US-PFIZER INC-202200283069

PATIENT
  Age: 71 Year
  Sex: Male

DRUGS (2)
  1. XELJANZ XR [Suspect]
     Active Substance: TOFACITINIB CITRATE
     Indication: Rheumatoid arthritis
     Dosage: 11 MG, 1X/DAY
     Route: 048
     Dates: start: 2015
  2. NAPROXEN [Concomitant]
     Active Substance: NAPROXEN
     Dosage: UNK

REACTIONS (6)
  - Therapeutic product effect incomplete [Unknown]
  - Product dose omission in error [Unknown]
  - Pain [Unknown]
  - Pain in extremity [Recovering/Resolving]
  - Tooth extraction [Unknown]
  - Memory impairment [Unknown]

NARRATIVE: CASE EVENT DATE: 20220818
